FAERS Safety Report 17350276 (Version 1)
Quarter: 2020Q1

REPORT INFORMATION
  Report Type: Spontaneous
  Country: DE (occurrence: DE)
  Receive Date: 20200130
  Receipt Date: 20200130
  Transmission Date: 20200409
  Serious: Yes (Other)
  Sender: FDA-Public Use
  Company Number: DE-AUROBINDO-AUR-APL-2018-004823

PATIENT
  Age: 32 Year
  Sex: Female

DRUGS (2)
  1. CEFUROXIME 500MG [Suspect]
     Active Substance: CEFUROXIME
     Indication: INFECTION
     Dosage: 500 MILLIGRAM, ONCE A DAY
     Route: 048
  2. CEFUROXIME 500MG [Suspect]
     Active Substance: CEFUROXIME
     Indication: INFECTIOUS MONONUCLEOSIS

REACTIONS (2)
  - Breast milk discolouration [Recovered/Resolved]
  - Maternal exposure during breast feeding [Recovered/Resolved]
